FAERS Safety Report 6983052-4 (Version None)
Quarter: 2010Q3

REPORT INFORMATION
  Report Type: 
  Country: None (occurrence: None)
  Receive Date: 20100914
  Receipt Date: 20100601
  Transmission Date: 20110219
  Serious: No
  Sender: FDA-Public Use
  Company Number: US-PFIZER INC-2010068924

PATIENT
  Sex: Male

DRUGS (4)
  1. LYRICA [Suspect]
     Indication: HYPOAESTHESIA
     Dosage: 75 MG, 2X/DAY
     Route: 048
     Dates: start: 20100101, end: 20100530
  2. ATENOLOL [Concomitant]
     Indication: BLOOD PRESSURE
     Dosage: 100 MG, DAILY
  3. WARFARIN SODIUM [Concomitant]
     Indication: BLOOD DISORDER
     Dosage: 6 MG, DAILY
  4. GLYBURIDE [Concomitant]
     Indication: DIABETES MELLITUS
     Dosage: 5 MG, UNK
     Route: 048

REACTIONS (1)
  - ERECTILE DYSFUNCTION [None]
